FAERS Safety Report 14977258 (Version 1)
Quarter: 2018Q2

REPORT INFORMATION
  Report Type: Spontaneous
  Country: DE (occurrence: DE)
  Receive Date: 20180606
  Receipt Date: 20180606
  Transmission Date: 20180711
  Serious: Yes (Hospitalization)
  Sender: FDA-Public Use
  Company Number: DE-TEVA-2018-DE-902421

PATIENT
  Age: 74 Year
  Sex: Female

DRUGS (10)
  1. FUROSEMID [Concomitant]
     Active Substance: FUROSEMIDE
     Dosage: 1-1-0-0
     Route: 065
  2. ACETYLSALICYLSAEURE [Concomitant]
     Active Substance: ASPIRIN
     Dosage: 0-1-0-0
     Route: 065
  3. TROSPIUM [Concomitant]
     Active Substance: TROSPIUM
     Dosage: 0.5-0.5-0.5-0
     Route: 065
  4. METOPROLOL. [Suspect]
     Active Substance: METOPROLOL
     Dosage: 1-0-0-0
     Route: 065
  5. FLUOXETINE [Suspect]
     Active Substance: FLUOXETINE HYDROCHLORIDE
     Dosage: 1-0-1-0
     Route: 065
  6. PREGABALIN. [Suspect]
     Active Substance: PREGABALIN
     Dosage: 1-0-1-0
     Route: 065
  7. TILIDIN [Suspect]
     Active Substance: NALOXONE HYDROCHLORIDE\TILIDINE HYDROCHLORIDE
     Dosage: 2-0-2-0
     Route: 065
  8. SPIRONOLACTON [Concomitant]
     Active Substance: SPIRONOLACTONE
     Dosage: 1-0-0-0
     Route: 065
  9. KALIUMCITRAT [Concomitant]
     Dosage: NK MG, 0.5-0-0-0
     Route: 065
  10. VALSARTAN. [Concomitant]
     Active Substance: VALSARTAN
     Dosage: 1-0-1-0
     Route: 065

REACTIONS (3)
  - Dyspnoea [Unknown]
  - Drug administration error [Unknown]
  - Medication monitoring error [Unknown]

NARRATIVE: CASE EVENT DATE: 20151015
